FAERS Safety Report 21556296 (Version 1)
Quarter: 2022Q4

REPORT INFORMATION
  Report Type: Spontaneous
  Country: CN (occurrence: CN)
  Receive Date: 20221104
  Receipt Date: 20221104
  Transmission Date: 20230113
  Serious: Yes (Hospitalization, Other)
  Sender: FDA-Public Use
  Company Number: None

PATIENT
  Age: 5 Year
  Sex: Male
  Weight: 21.5 kg

DRUGS (5)
  1. CYCLOPHOSPHAMIDE [Suspect]
     Active Substance: CYCLOPHOSPHAMIDE
     Indication: Acute myeloid leukaemia
     Dosage: 852 MG, QD, INJECTION
     Route: 041
     Dates: start: 20221009, end: 20221009
  2. PEGASPARGASE [Suspect]
     Active Substance: PEGASPARGASE
     Indication: Acute myeloid leukaemia
     Dosage: 2130 IU, QD
     Route: 030
     Dates: start: 20221010, end: 20221010
  3. METHOTREXATE [Suspect]
     Active Substance: METHOTREXATE
     Indication: Acute myeloid leukaemia
     Dosage: 12 MG, ONCE EVERY 8 DAYS
     Route: 037
     Dates: start: 20221011, end: 20221019
  4. CYTARABINE [Suspect]
     Active Substance: CYTARABINE
     Indication: Acute myeloid leukaemia
     Dosage: 36 MG, ONCE EVERY 8 DAYS
     Route: 037
     Dates: start: 20221011, end: 20221019
  5. CYTARABINE [Suspect]
     Active Substance: CYTARABINE
     Dosage: 64 MG, QD
     Route: 041
     Dates: start: 20221011, end: 20221014

REACTIONS (3)
  - Serum ferritin abnormal [Not Recovered/Not Resolved]
  - Blood fibrinogen abnormal [Not Recovered/Not Resolved]
  - Myelosuppression [Not Recovered/Not Resolved]

NARRATIVE: CASE EVENT DATE: 20221021
